FAERS Safety Report 12602267 (Version 1)
Quarter: 2016Q3

REPORT INFORMATION
  Report Type: Spontaneous
  Country: US (occurrence: None)
  Receive Date: 20160727
  Receipt Date: 20160727
  Transmission Date: 20161109
  Serious: Yes (Hospitalization)
  Sender: FDA-Public Use
  Company Number: None

PATIENT
  Age: 67 Year
  Sex: Male
  Weight: 69.7 kg

DRUGS (1)
  1. TEMOZOLOMIDE. [Suspect]
     Active Substance: TEMOZOLOMIDE
     Dates: end: 20160610

REACTIONS (5)
  - Hemiparesis [None]
  - Condition aggravated [None]
  - Abasia [None]
  - Disease progression [None]
  - Muscle twitching [None]

NARRATIVE: CASE EVENT DATE: 20160625
